FAERS Safety Report 7349113-5 (Version None)
Quarter: 2011Q1

REPORT INFORMATION
  Report Type: 
  Country: None (occurrence: None)
  Receive Date: 20110314
  Receipt Date: 20110125
  Transmission Date: 20110831
  Serious: Yes (Death)
  Sender: FDA-Public Use
  Company Number: US-TYCO HEALTHCARE/MALLINCKRODT-T201100463

PATIENT
  Age: 87 Year
  Sex: Female

DRUGS (2)
  1. LABETALOL HCL [Suspect]
     Route: 048
  2. PAMELOR [Suspect]
     Route: 048

REACTIONS (1)
  - DEATH [None]
